FAERS Safety Report 6086775-7 (Version None)
Quarter: 2009Q1

REPORT INFORMATION
  Report Type: 
  Country: None (occurrence: None)
  Receive Date: 20090217
  Receipt Date: 20090202
  Transmission Date: 20090719
  Serious: Yes (Death)
  Sender: FDA-Public Use
  Company Number: CHPA2009US01752

PATIENT
  Age: 52 Year
  Sex: Male

DRUGS (2)
  1. ACETYLSALICYLIC ACID (NCH) (ACETYLSALICYLIC ACID) TABLET [Suspect]
     Dosage: ORAL;
     Route: 048
  2. COCAINE (COCAINE) [Suspect]
     Dosage: ORAL; INHALATION
     Route: 048

REACTIONS (1)
  - INTENTIONAL DRUG MISUSE [None]
